FAERS Safety Report 4760995-3 (Version None)
Quarter: 2005Q3

REPORT INFORMATION
  Report Type: 
  Country: None (occurrence: None)
  Receive Date: 20050901
  Receipt Date: 20050823
  Transmission Date: 20060218
  Serious: Yes (Other)
  Sender: FDA-Public Use
  Company Number: S05-USA-04021-01

PATIENT
  Age: 26 Year
  Sex: Male

DRUGS (2)
  1. LEXAPRO [Suspect]
     Indication: DEPRESSION
     Dosage: 2.5 MG QD PO
     Route: 048
     Dates: start: 20050815
  2. LAMICTAL [Suspect]
     Indication: BIPOLAR DISORDER
     Dosage: 75 MG QD PO
     Route: 048
     Dates: start: 20050701, end: 20050815

REACTIONS (2)
  - LIVER FUNCTION TEST ABNORMAL [None]
  - NASOPHARYNGITIS [None]
